FAERS Safety Report 4310207-X (Version None)
Quarter: 2004Q1

REPORT INFORMATION
  Report Type: 
  Country: None (occurrence: None)
  Receive Date: 20040302
  Receipt Date: 20040302
  Transmission Date: 20041129
  Serious: Yes (Disabling)
  Sender: FDA-Public Use
  Company Number: None

PATIENT
  Age: 42 Year
  Sex: Female
  Weight: 59.8748 kg

DRUGS (2)
  1. ZICAM [Suspect]
     Indication: NASOPHARYNGITIS
     Dosage: AS DIRECT 1 TIME 2/0 NASAL
     Route: 045
     Dates: start: 20040205, end: 20040205
  2. ZICAM [Suspect]
     Indication: PROPHYLAXIS
     Dosage: AS DIRECT 1 TIME 2/0 NASAL
     Route: 045
     Dates: start: 20040205, end: 20040205

REACTIONS (2)
  - BURNING SENSATION [None]
  - PAROSMIA [None]
